FAERS Safety Report 4481215-3 (Version None)
Quarter: 2004Q3

REPORT INFORMATION
  Report Type: 
  Country: None (occurrence: None)
  Receive Date: 20040923
  Receipt Date: 20040629
  Transmission Date: 20050211
  Serious: No
  Sender: FDA-Public Use
  Company Number: USA040156994

PATIENT
  Age: 55 Year
  Sex: Female

DRUGS (5)
  1. FORTEO [Suspect]
     Indication: BONE DISORDER
     Dosage: 20 UG DASY
     Dates: start: 20031130
  2. PREVACID [Concomitant]
  3. PREMARIN [Concomitant]
  4. ATENOLOL [Concomitant]
  5. MAXZIDE [Concomitant]

REACTIONS (3)
  - BURNING SENSATION [None]
  - CYST [None]
  - WEIGHT INCREASED [None]
